FAERS Safety Report 6839256-4 (Version None)
Quarter: 2010Q3

REPORT INFORMATION
  Report Type: 
  Country: None (occurrence: None)
  Receive Date: 20100714
  Receipt Date: 20100112
  Transmission Date: 20110219
  Serious: No
  Sender: FDA-Public Use
  Company Number: US-KINGPHARMUSA00001-K201000041

PATIENT
  Sex: Male
  Weight: 63.492 kg

DRUGS (3)
  1. BICILLIN L-A [Suspect]
     Indication: LYME DISEASE
     Dosage: 1200000 U, 5 DAYS A WEEK M-F
     Route: 030
     Dates: start: 20091224, end: 20100108
  2. BICILLIN L-A [Suspect]
     Dosage: UNK
     Dates: start: 19960101, end: 19960101
  3. BICILLIN L-A [Suspect]
     Dosage: UNK

REACTIONS (1)
  - COGNITIVE DISORDER [None]
